FAERS Safety Report 7916492-7 (Version None)
Quarter: 2011Q4

REPORT INFORMATION
  Report Type: 
  Country: None (occurrence: None)
  Receive Date: 20111114
  Receipt Date: 20111028
  Transmission Date: 20120403
  Serious: Yes (Other)
  Sender: FDA-Public Use
  Company Number: NSR_00306_2011

PATIENT
  Age: 22 Year
  Sex: Male

DRUGS (3)
  1. VENLAFAXINE [Suspect]
     Indication: CATAPLEXY
  2. VENLAFAXINE [Suspect]
     Indication: NARCOLEPSY
  3. MODAFINIL [Concomitant]

REACTIONS (10)
  - MUSCULAR WEAKNESS [None]
  - ENERGY INCREASED [None]
  - SEXUALLY INAPPROPRIATE BEHAVIOUR [None]
  - ABNORMAL DREAMS [None]
  - GRANDIOSITY [None]
  - PSYCHOMOTOR HYPERACTIVITY [None]
  - PATHOLOGICAL GAMBLING [None]
  - MANIA [None]
  - SOMNOLENCE [None]
  - CATAPLEXY [None]
